FAERS Safety Report 21082482 (Version 1)
Quarter: 2022Q3

REPORT INFORMATION
  Report Type: Spontaneous
  Country: US (occurrence: None)
  Receive Date: 20220714
  Receipt Date: 20220714
  Transmission Date: 20221027
  Serious: Yes (Life-Threatening)
  Sender: FDA-Public Use
  Company Number: None

PATIENT
  Age: 71 Year
  Sex: Male

DRUGS (1)
  1. SULFAMETHOXAZOLE\TRIMETHOPRIM [Suspect]
     Active Substance: SULFAMETHOXAZOLE\TRIMETHOPRIM
     Dosage: FREQUENCY : 3 TIMES A DAY;?
     Route: 042
     Dates: start: 20220624, end: 20220624

REACTIONS (9)
  - Behaviour disorder [None]
  - Aphasia [None]
  - Cerebral cyst [None]
  - Fatigue [None]
  - Vasogenic cerebral oedema [None]
  - Wheezing [None]
  - Flushing [None]
  - Stridor [None]
  - Anaphylactic reaction [None]

NARRATIVE: CASE EVENT DATE: 20220624
